FAERS Safety Report 7728144-7 (Version None)
Quarter: 2011Q3

REPORT INFORMATION
  Report Type: 
  Country: None (occurrence: None)
  Receive Date: 20110905
  Receipt Date: 20110829
  Transmission Date: 20111222
  Serious: Yes (Other)
  Sender: FDA-Public Use
  Company Number: IT-BRISTOL-MYERS SQUIBB COMPANY-16023319

PATIENT
  Sex: Female

DRUGS (2)
  1. ATAZANAVIR [Suspect]
  2. RITONAVIR [Suspect]

REACTIONS (2)
  - ABORTION SPONTANEOUS [None]
  - PREGNANCY [None]
